FAERS Safety Report 25876444 (Version 1)
Quarter: 2025Q4

REPORT INFORMATION
  Report Type: Spontaneous
  Country: EU (occurrence: EU)
  Receive Date: 20251003
  Receipt Date: 20251003
  Transmission Date: 20260118
  Serious: Yes (Other)
  Sender: AUROBINDO
  Company Number: EU-BRISTOL-MYERS SQUIBB COMPANY-2025-128678

PATIENT
  Age: 50 Year
  Sex: Male

DRUGS (6)
  1. CARBOPLATIN [Suspect]
     Active Substance: CARBOPLATIN
     Indication: Non-small cell lung cancer
     Dosage: AUC 6
     Route: 065
     Dates: start: 20220701
  2. PACLITAXEL [Suspect]
     Active Substance: PACLITAXEL
     Indication: Non-small cell lung cancer
     Dosage: 200 MILLIGRAM/SQ. METER
     Route: 065
     Dates: start: 20220701
  3. NELVUTAMIG [Suspect]
     Active Substance: NELVUTAMIG
     Indication: Non-small cell lung cancer
     Dosage: 1 MILLIGRAM/KILOGRAM
     Route: 065
     Dates: start: 20220701
  4. NELVUTAMIG [Suspect]
     Active Substance: NELVUTAMIG
     Dosage: 17TH CYCLE OF IPILIMUMAB
     Route: 065
     Dates: start: 20240731
  5. NIVOLUMAB [Suspect]
     Active Substance: NIVOLUMAB
     Indication: Non-small cell lung cancer
     Dosage: 360 MILLIGRAM
     Route: 065
     Dates: start: 20220701, end: 20240731
  6. NIVOLUMAB [Suspect]
     Active Substance: NIVOLUMAB
     Dosage: 36TH CYCLE OF NIVOLUMAB
     Route: 065
     Dates: start: 20240731

REACTIONS (3)
  - Hypothyroidism [Unknown]
  - Pustule [Unknown]
  - Pruritus [Unknown]

NARRATIVE: CASE EVENT DATE: 20230201
